FAERS Safety Report 6551746-0 (Version None)
Quarter: 2010Q1

REPORT INFORMATION
  Report Type: 
  Country: None (occurrence: None)
  Receive Date: 20100126
  Receipt Date: 20100119
  Transmission Date: 20100710
  Serious: Yes (Hospitalization)
  Sender: FDA-Public Use
  Company Number: PL-ROCHE-677413

PATIENT
  Sex: Female
  Weight: 60 kg

DRUGS (5)
  1. BEVACIZUMAB [Suspect]
     Indication: RENAL CELL CARCINOMA
     Route: 042
     Dates: start: 20091130, end: 20091214
  2. INTERFERON ALFA [Suspect]
     Indication: RENAL CELL CARCINOMA
     Route: 058
     Dates: start: 20091130, end: 20091215
  3. PARACETAMOL [Concomitant]
     Dates: start: 20091001
  4. ACARD [Concomitant]
     Dates: start: 20091001
  5. AMLOZEK [Concomitant]
     Indication: HYPERTENSION
     Dates: start: 20091001

REACTIONS (2)
  - ANAEMIA [None]
  - RENAL FAILURE [None]
